FAERS Safety Report 16951504 (Version 1)
Quarter: 2019Q4

REPORT INFORMATION
  Report Type: Spontaneous
  Country: US (occurrence: US)
  Receive Date: 20191023
  Receipt Date: 20191023
  Transmission Date: 20200122
  Serious: Yes (Hospitalization)
  Sender: FDA-Public Use
  Company Number: US-MYLANLABS-2019M1098802

PATIENT
  Age: 76 Year
  Sex: Male

DRUGS (15)
  1. FINASTERIDE. [Concomitant]
     Active Substance: FINASTERIDE
     Indication: PRODUCT USED FOR UNKNOWN INDICATION
     Dosage: 5 MILLIGRAM, QD
     Route: 065
  2. TRAZODONE [Concomitant]
     Active Substance: TRAZODONE HYDROCHLORIDE
     Indication: RAPID EYE MOVEMENT SLEEP BEHAVIOUR DISORDER
     Dosage: AT BED-TIME
     Route: 065
     Dates: start: 2019
  3. OLANZAPINE. [Suspect]
     Active Substance: OLANZAPINE
     Indication: DEMENTIA WITH LEWY BODIES
     Dosage: 10 MILLIGRAM
     Route: 030
     Dates: start: 2019, end: 2019
  4. ZIPRASIDONE. [Suspect]
     Active Substance: ZIPRASIDONE
     Indication: DEMENTIA WITH LEWY BODIES
     Dosage: 10 MILLIGRAM
     Route: 030
     Dates: start: 2019, end: 2019
  5. ATORVASTATIN [Concomitant]
     Active Substance: ATORVASTATIN
     Indication: PRODUCT USED FOR UNKNOWN INDICATION
     Dosage: 10 MILLIGRAM, QD
     Route: 065
  6. METOPROLOL SUCCINATE. [Concomitant]
     Active Substance: METOPROLOL SUCCINATE
     Indication: PRODUCT USED FOR UNKNOWN INDICATION
     Dosage: 100 MILLIGRAM, QD
     Route: 065
  7. RIVASTIGMINE. [Concomitant]
     Active Substance: RIVASTIGMINE
     Indication: DEMENTIA WITH LEWY BODIES
     Dosage: 1.5 MILLIGRAM
     Route: 065
     Dates: start: 2019
  8. QUETIAPINE. [Suspect]
     Active Substance: QUETIAPINE
     Indication: DEMENTIA WITH LEWY BODIES
     Dosage: 50 MILLIGRAM, QD
     Route: 065
     Dates: start: 2019
  9. LISINOPRIL. [Concomitant]
     Active Substance: LISINOPRIL
     Indication: PRODUCT USED FOR UNKNOWN INDICATION
     Dosage: 20 MILLIGRAM, QD
     Route: 065
  10. ASPIRIN                            /00002701/ [Concomitant]
     Active Substance: ASPIRIN
     Indication: PRODUCT USED FOR UNKNOWN INDICATION
     Dosage: 81 MILLIGRAM, QD
     Route: 065
  11. QUETIAPINE. [Suspect]
     Active Substance: QUETIAPINE
     Dosage: DOSE WAS INCREASED TO 100 MG DAILY PLUS 25 MG AS NEEDED
     Route: 065
     Dates: start: 2019
  12. RIVASTIGMINE. [Concomitant]
     Active Substance: RIVASTIGMINE
     Dosage: 3 MILLIGRAM
     Route: 065
  13. QUETIAPINE. [Suspect]
     Active Substance: QUETIAPINE
     Dosage: FURTHER DOSE INCREASED TO 150 MG DAILY PLUS PRN ORDERS, WITH A TARGETED DAILY DOSE OF 200-400 MG
     Route: 065
     Dates: start: 2019
  14. HALOPERIDOL. [Suspect]
     Active Substance: HALOPERIDOL
     Indication: DEMENTIA WITH LEWY BODIES
     Dosage: ON HD 4, HD 6 AND HD 9
     Route: 030
     Dates: start: 2019, end: 2019
  15. MELATONIN [Concomitant]
     Active Substance: MELATONIN
     Indication: RAPID EYE MOVEMENT SLEEP BEHAVIOUR DISORDER
     Dosage: AT BED-TIME
     Route: 065
     Dates: start: 2019

REACTIONS (3)
  - Condition aggravated [Recovering/Resolving]
  - Confusional state [Recovering/Resolving]
  - Agitation [Recovering/Resolving]

NARRATIVE: CASE EVENT DATE: 2019
